FAERS Safety Report 14417755 (Version 2)
Quarter: 2018Q1

REPORT INFORMATION
  Report Type: Spontaneous
  Country: US (occurrence: US)
  Receive Date: 20180122
  Receipt Date: 20180305
  Transmission Date: 20180509
  Serious: Yes (Other)
  Sender: FDA-Public Use
  Company Number: US-ASTELLAS-2017US051081

PATIENT
  Age: 74 Year
  Sex: Male

DRUGS (3)
  1. ZYTIGA [Suspect]
     Active Substance: ABIRATERONE ACETATE
     Indication: PROSTATE CANCER METASTATIC
     Dosage: UNK, UNKNOWN FREQ.
     Route: 065
  2. XTANDI [Suspect]
     Active Substance: ENZALUTAMIDE
     Indication: HORMONE-REFRACTORY PROSTATE CANCER
     Route: 048
     Dates: start: 20170507
  3. VITAMIN B [Concomitant]
     Active Substance: VITAMIN B
     Indication: PRODUCT USED FOR UNKNOWN INDICATION
     Dosage: UNK UNK, UNKNOWN FREQ.
     Route: 065

REACTIONS (9)
  - Paraesthesia [Unknown]
  - Clonus [Recovering/Resolving]
  - Peripheral swelling [Unknown]
  - Pain in extremity [Unknown]
  - Insomnia [Unknown]
  - Muscle twitching [Recovering/Resolving]
  - Arthralgia [Unknown]
  - Pain in extremity [Unknown]
  - Fatigue [Unknown]

NARRATIVE: CASE EVENT DATE: 201710
